FAERS Safety Report 9473495 (Version 1)
Quarter: 2013Q3

REPORT INFORMATION
  Report Type: Spontaneous
  Country: US (occurrence: US)
  Receive Date: 20130823
  Receipt Date: 20130823
  Transmission Date: 20140515
  Serious: No
  Sender: FDA-Public Use
  Company Number: US-BRISTOL-MYERS SQUIBB COMPANY-19034396

PATIENT
  Age: 51 Year
  Sex: Male

DRUGS (1)
  1. SPRYCEL [Suspect]
     Route: 048

REACTIONS (7)
  - Constipation [Unknown]
  - Faeces discoloured [Unknown]
  - Fatigue [Unknown]
  - Hyperhidrosis [Unknown]
  - Pain [Unknown]
  - Contusion [Unknown]
  - Wound haemorrhage [Unknown]
